FAERS Safety Report 7196975-0 (Version None)
Quarter: 2010Q4

REPORT INFORMATION
  Report Type: 
  Country: None (occurrence: None)
  Receive Date: 20101224
  Receipt Date: 20101222
  Transmission Date: 20110411
  Serious: Yes (Other)
  Sender: FDA-Public Use
  Company Number: US-RB-017231-10

PATIENT
  Age: 10 Year
  Sex: Male

DRUGS (1)
  1. MUCINEX [Suspect]
     Dosage: PATIENT TOOK TWO DOSES. 2 TEASPOONS IN THE MORNING AND 2 TEASPOONS IN THE AFTERNOON
     Route: 048

REACTIONS (2)
  - EPISTAXIS [None]
  - INCREASED UPPER AIRWAY SECRETION [None]
